FAERS Safety Report 17025711 (Version 1)
Quarter: 2019Q4

REPORT INFORMATION
  Report Type: Spontaneous
  Country: IT (occurrence: IT)
  Receive Date: 20191113
  Receipt Date: 20191113
  Transmission Date: 20200122
  Serious: Yes (Hospitalization)
  Sender: FDA-Public Use
  Company Number: IT-ASTRAZENECA-2019SF58228

PATIENT
  Age: 35 Year
  Sex: Male

DRUGS (3)
  1. ALPRAZOLAM. [Suspect]
     Active Substance: ALPRAZOLAM
     Dosage: ONCE/SINGLE ADMINISTRATION
     Route: 048
  2. CLOMIPRAMINE HYDROCHLORIDE. [Suspect]
     Active Substance: CLOMIPRAMINE HYDROCHLORIDE
     Dosage: ONCE/SINGLE ADMINISTRATION
     Route: 048
  3. QUETIAPINE FUMARATE. [Suspect]
     Active Substance: QUETIAPINE FUMARATE
     Dosage: 250.0MG ONCE/SINGLE ADMINISTRATION
     Route: 048

REACTIONS (2)
  - Overdose [Unknown]
  - Sopor [Unknown]

NARRATIVE: CASE EVENT DATE: 20190509
